FAERS Safety Report 4712446-2 (Version None)
Quarter: 2005Q3

REPORT INFORMATION
  Report Type: 
  Country: None (occurrence: None)
  Receive Date: 20050712
  Receipt Date: 20050708
  Transmission Date: 20060218
  Serious: Yes (Death)
  Sender: FDA-Public Use
  Company Number: PHFR2005GB02399

PATIENT
  Sex: Male

DRUGS (1)
  1. DIOVAN [Suspect]

REACTIONS (1)
  - DEATH [None]
